FAERS Safety Report 15132055 (Version 2)
Quarter: 2018Q3

REPORT INFORMATION
  Report Type: Spontaneous
  Country: US (occurrence: US)
  Receive Date: 20180711
  Receipt Date: 20180719
  Transmission Date: 20181010
  Serious: No
  Sender: FDA-Public Use
  Company Number: US-GALDERMA-US17012010

PATIENT
  Sex: Female

DRUGS (1)
  1. DIFFERIN GEL [Suspect]
     Active Substance: ADAPALENE
     Indication: ACNE
     Dosage: 0.1%
     Route: 061

REACTIONS (5)
  - Skin exfoliation [Unknown]
  - Erythema [Unknown]
  - Pain of skin [Unknown]
  - Dermatitis [Unknown]
  - Insomnia [Not Recovered/Not Resolved]
